FAERS Safety Report 9645664 (Version 1)
Quarter: 2013Q4

REPORT INFORMATION
  Report Type: Report from Study
  Country: AR (occurrence: AR)
  Receive Date: 20131025
  Receipt Date: 20131025
  Transmission Date: 20140711
  Serious: Yes (Hospitalization)
  Sender: FDA-Public Use
  Company Number: PHHY2013AR120732

PATIENT
  Sex: Female

DRUGS (1)
  1. DIOVAN [Suspect]
     Indication: BLOOD PRESSURE FLUCTUATION
     Dosage: 160 MG, PER DAY
     Route: 048
     Dates: end: 2010

REACTIONS (1)
  - Angiopathy [Recovered/Resolved]
